FAERS Safety Report 19425561 (Version 1)
Quarter: 2021Q2

REPORT INFORMATION
  Report Type: Spontaneous
  Country: CA (occurrence: CA)
  Receive Date: 20210616
  Receipt Date: 20210616
  Transmission Date: 20210717
  Serious: Yes (Hospitalization)
  Sender: FDA-Public Use
  Company Number: CA-BAYER-2021-154887

PATIENT
  Age: 85 Year
  Sex: Female
  Weight: 80 kg

DRUGS (11)
  1. LIOTHYRONINE [Concomitant]
     Active Substance: LIOTHYRONINE
     Route: 048
  2. TELMISARTAN. [Concomitant]
     Active Substance: TELMISARTAN
     Route: 048
  3. BACLOFEN. [Concomitant]
     Active Substance: BACLOFEN
  4. LASIX [Concomitant]
     Active Substance: FUROSEMIDE
     Route: 048
  5. GADOVIST [Suspect]
     Active Substance: GADOBUTROL
     Indication: MAGNETIC RESONANCE IMAGING
     Dosage: 1.0 DOSAGE FORMS
     Route: 042
  6. ELIQUIS [Concomitant]
     Active Substance: APIXABAN
     Route: 048
  7. METRONIDAZOLE. [Concomitant]
     Active Substance: METRONIDAZOLE
  8. TRANEXAMIC ACID. [Concomitant]
     Active Substance: TRANEXAMIC ACID
  9. CITALOPRAM [Concomitant]
     Active Substance: CITALOPRAM HYDROBROMIDE
     Route: 048
  10. TEMAZEPAM. [Concomitant]
     Active Substance: TEMAZEPAM
     Route: 048
  11. GABAPENTIN. [Concomitant]
     Active Substance: GABAPENTIN

REACTIONS (1)
  - Unresponsive to stimuli [None]
